FAERS Safety Report 25809908 (Version 2)
Quarter: 2025Q4

REPORT INFORMATION
  Report Type: Spontaneous
  Country: BR (occurrence: BR)
  Receive Date: 20250917
  Receipt Date: 20251003
  Transmission Date: 20260118
  Serious: Yes (Hospitalization)
  Sender: ACCORD
  Company Number: BR-MLMSERVICE-20250827-PI626808-00101-1

PATIENT
  Age: 66 Year
  Sex: Male

DRUGS (7)
  1. CISPLATIN [Suspect]
     Active Substance: CISPLATIN
     Indication: Laryngeal cancer stage IV
     Dosage: ON DAY-01 EVERY 21 DAYS FOR FOUR CYCLES
     Dates: start: 202108, end: 202111
  2. DOCETAXEL [Suspect]
     Active Substance: DOCETAXEL
     Indication: Laryngeal cancer stage IV
     Dosage: ON DAY 1 EVERY 21 DAYS FOR FOUR CYCLES
     Dates: start: 202108, end: 202111
  3. CETUXIMAB [Suspect]
     Active Substance: CETUXIMAB
     Indication: Laryngeal cancer stage IV
     Dosage: CETUXIMAB ON DAYS 1, 8 AND 15 (400 MG/M2 ON DAY 1 OF CYCLE 1 AND 250
     Dates: start: 202108, end: 2021
  4. CETUXIMAB [Suspect]
     Active Substance: CETUXIMAB
     Indication: Laryngeal cancer stage IV
     Dosage: CETUXIMAB ON DAYS 1, 8 AND 15 (400 MG/M2 ON
     Dates: start: 2021, end: 2021
  5. CETUXIMAB [Suspect]
     Active Substance: CETUXIMAB
     Indication: Metastases to bone
     Dosage: CETUXIMAB ON DAYS 1, 8 AND 15 (400 MG/M2 ON
     Dates: start: 202108, end: 2021
  6. CISPLATIN [Suspect]
     Active Substance: CISPLATIN
     Indication: Metastases to liver
     Dosage: ON DAY-01 EVERY 21 DAYS FOR FOUR CYCLES
     Dates: start: 202108, end: 202111
  7. DOCETAXEL [Suspect]
     Active Substance: DOCETAXEL
     Indication: Metastases to bone
     Dosage: ON DAY 1 EVERY 21 DAYS FOR FOUR CYCLES
     Dates: start: 202108, end: 202111

REACTIONS (3)
  - Severe cutaneous adverse reaction [Unknown]
  - Pneumonia [Unknown]
  - Off label use [Unknown]

NARRATIVE: CASE EVENT DATE: 20210101
